FAERS Safety Report 10159408 (Version 3)
Quarter: 2015Q3

REPORT INFORMATION
  Report Type: Spontaneous
  Country: US (occurrence: US)
  Receive Date: 20140508
  Receipt Date: 20150804
  Transmission Date: 20151125
  Serious: Yes (Hospitalization)
  Sender: FDA-Public Use
  Company Number: US-BAYER-2014-065365

PATIENT
  Age: 28 Year
  Sex: Female
  Weight: 67.57 kg

DRUGS (3)
  1. YAZ [Suspect]
     Active Substance: DROSPIRENONE\ETHINYL ESTRADIOL
     Indication: CONTRACEPTION
     Dosage: UNK
     Dates: start: 20080710, end: 20100513
  2. SULFACETAMIDE SODIUM [SULFACETAMIDE] [Concomitant]
     Dosage: 10 %, UNK
     Route: 061
     Dates: start: 20100409
  3. DIFFERIN [Concomitant]
     Active Substance: ADAPALENE
     Dosage: 0.3 %, UNK
     Route: 061
     Dates: start: 20100409

REACTIONS (3)
  - Deep vein thrombosis [Recovered/Resolved]
  - Injury [Recovered/Resolved]
  - Pain [Recovered/Resolved]

NARRATIVE: CASE EVENT DATE: 20100513
